FAERS Safety Report 8964300 (Version 1)
Quarter: 2012Q4

REPORT INFORMATION
  Report Type: 
  Country: US (occurrence: US)
  Receive Date: 20121214
  Receipt Date: 20121214
  Transmission Date: 20130627
  Serious: No
  Sender: FDA-Public Use
  Company Number: US-GLAXOSMITHKLINE-A0963770A

PATIENT
  Age: 72 Year
  Sex: Male

DRUGS (8)
  1. AVODART [Suspect]
     Indication: PROSTATOMEGALY
     Dosage: .5MG Per day
     Route: 048
     Dates: start: 2006
  2. WARFARIN [Concomitant]
  3. MOEXIPRIL [Concomitant]
  4. DOXAZOSIN [Concomitant]
  5. HYDROCHLOROTHIAZIDE [Concomitant]
  6. DICLOFENAC [Concomitant]
  7. PREDNISONE [Concomitant]
  8. POTASSIUM [Concomitant]

REACTIONS (4)
  - Drug ineffective [Not Recovered/Not Resolved]
  - Erectile dysfunction [Unknown]
  - Urinary incontinence [Unknown]
  - Balance disorder [Unknown]
